FAERS Safety Report 14817074 (Version 1)
Quarter: 2018Q2

REPORT INFORMATION
  Report Type: Spontaneous
  Country: KR (occurrence: KR)
  Receive Date: 20180426
  Receipt Date: 20180426
  Transmission Date: 20180711
  Serious: Yes (Hospitalization)
  Sender: FDA-Public Use
  Company Number: PHHY2018KR066501

PATIENT
  Age: 86 Year
  Sex: Female
  Weight: 40 kg

DRUGS (11)
  1. MEMANTINE. [Suspect]
     Active Substance: MEMANTINE
     Indication: DEMENTIA ALZHEIMER^S TYPE
     Dosage: 10 MG, QD
     Route: 065
  2. MEMANTINE. [Suspect]
     Active Substance: MEMANTINE
     Indication: PARKINSON^S DISEASE
     Dosage: 20 MG, QD
     Route: 065
  3. FLUOXETINE [Concomitant]
     Active Substance: FLUOXETINE HYDROCHLORIDE
     Indication: DEPRESSION
     Route: 065
  4. DONEPEZIL. [Concomitant]
     Active Substance: DONEPEZIL
     Indication: DEMENTIA ALZHEIMER^S TYPE
     Route: 065
  5. DONEPEZIL. [Concomitant]
     Active Substance: DONEPEZIL
     Indication: PARKINSON^S DISEASE
  6. LEVODOPA [Concomitant]
     Active Substance: LEVODOPA
     Indication: DEMENTIA ALZHEIMER^S TYPE
     Route: 065
  7. TIANEPTINE [Concomitant]
     Active Substance: TIANEPTINE
     Indication: DEMENTIA ALZHEIMER^S TYPE
     Dosage: 25 MG, QD
     Route: 065
  8. DIAZEPAM. [Concomitant]
     Active Substance: DIAZEPAM
     Indication: DEPRESSION
     Route: 065
  9. TIANEPTINE [Concomitant]
     Active Substance: TIANEPTINE
     Indication: PARKINSON^S DISEASE
  10. BUPROPION. [Suspect]
     Active Substance: BUPROPION
     Indication: DEPRESSION
     Dosage: 150 MG, QD
     Route: 065
  11. LEVODOPA [Concomitant]
     Active Substance: LEVODOPA
     Indication: PARKINSON^S DISEASE

REACTIONS (4)
  - Myoclonus [Recovering/Resolving]
  - Nausea [Unknown]
  - Dyskinesia [Unknown]
  - Vomiting [Unknown]
